FAERS Safety Report 6616710-1 (Version None)
Quarter: 2010Q1

REPORT INFORMATION
  Report Type: 
  Country: None (occurrence: None)
  Receive Date: 20100305
  Receipt Date: 20100226
  Transmission Date: 20100710
  Serious: Yes (Hospitalization)
  Sender: FDA-Public Use
  Company Number: IT-ABBOTT-10P-083-0628881-00

PATIENT
  Sex: Female

DRUGS (4)
  1. KLACID [Suspect]
     Indication: BACTERIAL INFECTION
     Dosage: 1 UNIT DAILY
     Dates: start: 20100101, end: 20100201
  2. TACHIDOL [Suspect]
     Indication: PAIN
     Dates: start: 20091201, end: 20100201
  3. ASPIRIN [Suspect]
     Indication: INFLAMMATION
     Dates: start: 20091201, end: 20100201
  4. DIFLUCAN [Suspect]
     Indication: FUNGAL INFECTION
     Dates: start: 20100101, end: 20100201

REACTIONS (3)
  - OEDEMA [None]
  - OEDEMA PERIPHERAL [None]
  - RASH ERYTHEMATOUS [None]
